FAERS Safety Report 5885070-6 (Version None)
Quarter: 2008Q3

REPORT INFORMATION
  Report Type: 
  Country: None (occurrence: None)
  Receive Date: 20080915
  Receipt Date: 20080915
  Transmission Date: 20090109
  Serious: Yes (Hospitalization)
  Sender: FDA-Public Use
  Company Number: None

PATIENT
  Age: 73 Year
  Sex: Male
  Weight: 102.2 kg

DRUGS (1)
  1. NPH INSULIN, BEEF [Suspect]
     Indication: DIABETES MELLITUS
     Dosage: 56 UNITS AM SQ
     Route: 058
     Dates: start: 19950308

REACTIONS (2)
  - HYPOGLYCAEMIA [None]
  - TREATMENT NONCOMPLIANCE [None]
